FAERS Safety Report 8413643-5 (Version None)
Quarter: 2012Q2

REPORT INFORMATION
  Report Type: 
  Country: None (occurrence: None)
  Receive Date: 20120605
  Receipt Date: 20120525
  Transmission Date: 20120825
  Serious: Yes (Death, Hospitalization)
  Sender: FDA-Public Use
  Company Number: JP-ROCHE-1074169

PATIENT
  Age: 75 Year
  Sex: Male

DRUGS (2)
  1. EDARAVONE [Suspect]
     Indication: EMBOLIC STROKE
     Route: 041
     Dates: start: 20110929, end: 20111001
  2. ALTEPLASE [Suspect]
     Indication: EMBOLIC STROKE
     Route: 042
     Dates: start: 20110929, end: 20110929

REACTIONS (2)
  - HAEMORRHAGIC INFARCTION [None]
  - CEREBRAL INFARCTION [None]
